FAERS Safety Report 5892281-2 (Version None)
Quarter: 2008Q3

REPORT INFORMATION
  Report Type: 
  Country: None (occurrence: None)
  Receive Date: 20080919
  Receipt Date: 20080903
  Transmission Date: 20090109
  Serious: Yes (Hospitalization)
  Sender: FDA-Public Use
  Company Number: ALA_00183_2008

PATIENT
  Sex: Female

DRUGS (14)
  1. REGLAN [Suspect]
     Indication: GASTROOESOPHAGEAL REFLUX DISEASE
     Dosage: (10 MG QID ORAL)
     Route: 048
     Dates: start: 20000101, end: 20080701
  2. REBIF [Concomitant]
  3. NIVEDIPINE [Concomitant]
  4. NIFEDIPINE [Concomitant]
  5. CLONAZEPAM [Concomitant]
  6. PROZAC [Concomitant]
  7. DITROPAN [Concomitant]
  8. AMPHETAMINE SULFATE [Concomitant]
  9. TRIMETHOPRIM [Concomitant]
  10. PRILOSEC [Concomitant]
  11. ALBUTEROL [Concomitant]
  12. QVAR 40 [Concomitant]
  13. NASAREL [Concomitant]
  14. VALIUM [Concomitant]

REACTIONS (7)
  - CONCUSSION [None]
  - CONDITION AGGRAVATED [None]
  - FALL [None]
  - GENERAL PHYSICAL HEALTH DETERIORATION [None]
  - MULTIPLE SCLEROSIS [None]
  - PARKINSON'S DISEASE [None]
  - SPINAL FRACTURE [None]
